FAERS Safety Report 5676217-5 (Version None)
Quarter: 2008Q1

REPORT INFORMATION
  Report Type: 
  Country: None (occurrence: None)
  Receive Date: 20080321
  Receipt Date: 20080314
  Transmission Date: 20080703
  Serious: Yes (Life-Threatening, Hospitalization)
  Sender: FDA-Public Use
  Company Number: ES-PFIZER INC-2007028429

PATIENT
  Age: 66 Year
  Sex: Female
  Weight: 53 kg

DRUGS (5)
  1. CARDYL [Suspect]
     Indication: LIPID METABOLISM DISORDER
     Route: 048
     Dates: start: 20050101, end: 20070201
  2. TACROLIMUS [Interacting]
     Indication: RENAL TRANSPLANT
     Route: 048
  3. PREDNISONE TAB [Concomitant]
     Route: 048
  4. MYCOPHENOLATE MOFETIL [Concomitant]
     Route: 048
     Dates: start: 20050101
  5. BISOPROLOL FUMARATE [Concomitant]
     Route: 048
     Dates: start: 20050101

REACTIONS (5)
  - DRUG INTERACTION [None]
  - HEPATIC ENZYME INCREASED [None]
  - MUSCULAR WEAKNESS [None]
  - MYALGIA [None]
  - RHABDOMYOLYSIS [None]
